FAERS Safety Report 7366915-X (Version None)
Quarter: 2011Q1

REPORT INFORMATION
  Report Type: 
  Country: None (occurrence: None)
  Receive Date: 20110322
  Receipt Date: 20110308
  Transmission Date: 20110831
  Serious: Yes (Life-Threatening, Hospitalization)
  Sender: FDA-Public Use
  Company Number: B0702593A

PATIENT
  Age: 62 Year
  Sex: Male
  Weight: 120 kg

DRUGS (3)
  1. MIXTARD HUMAN 70/30 [Concomitant]
     Indication: DIABETES MELLITUS
  2. UNKNOWN MEDICATION [Concomitant]
     Indication: HYPERTENSION
  3. FORTUM [Suspect]
     Indication: AMPUTATION
     Dosage: 1G PER DAY
     Route: 042
     Dates: start: 20110216, end: 20110219

REACTIONS (4)
  - PRODUCT COUNTERFEIT [None]
  - MUSCULAR WEAKNESS [None]
  - PRODUCT QUALITY ISSUE [None]
  - CEREBROVASCULAR ACCIDENT [None]
